FAERS Safety Report 10025389 (Version 1)
Quarter: 2014Q1

REPORT INFORMATION
  Report Type: Spontaneous
  Country: US (occurrence: None)
  Receive Date: 20140304
  Receipt Date: 20140304
  Transmission Date: 20141002
  Serious: Yes (Other)
  Sender: FDA-Public Use
  Company Number: RB-50242-2013

PATIENT
  Age: 45 Year
  Sex: Female

DRUGS (1)
  1. SUBOXONE [Suspect]
     Indication: DRUG DEPENDENCE
     Dosage: (24 MG, 3 TABLETS/DAY SUBLINGUAL)
     Route: 060

REACTIONS (3)
  - Convulsion [None]
  - Underdose [None]
  - Drug withdrawal syndrome [None]
